FAERS Safety Report 11307533 (Version 1)
Quarter: 2015Q3

REPORT INFORMATION
  Report Type: Spontaneous
  Country: US (occurrence: US)
  Receive Date: 20150723
  Receipt Date: 20150723
  Transmission Date: 20151125
  Serious: No
  Sender: FDA-Public Use
  Company Number: US-BAUSCH-SP08822

PATIENT
  Age: 39 Year
  Sex: Female
  Weight: 47.22 kg

DRUGS (1)
  1. XIFAXAN [Suspect]
     Active Substance: RIFAXIMIN
     Indication: SMALL INTESTINAL BACTERIAL OVERGROWTH
     Route: 048
     Dates: start: 20141213, end: 20141231

REACTIONS (3)
  - Vomiting [Recovered/Resolved]
  - Dysgeusia [Recovered/Resolved]
  - Gastrooesophageal reflux disease [Recovered/Resolved]

NARRATIVE: CASE EVENT DATE: 20141231
